FAERS Safety Report 4714651-8 (Version None)
Quarter: 2005Q3

REPORT INFORMATION
  Report Type: 
  Country: None (occurrence: None)
  Receive Date: 20050715
  Receipt Date: 20041026
  Transmission Date: 20060218
  Serious: Yes (Other)
  Sender: FDA-Public Use
  Company Number: 2004AP05556

PATIENT
  Age: 16699 Day
  Sex: Female
  Weight: 49 kg

DRUGS (6)
  1. DIPRIVAN [Suspect]
     Indication: INDUCTION OF ANAESTHESIA
     Route: 042
     Dates: start: 20041012, end: 20041012
  2. PENTAZOCINE LACTATE [Suspect]
     Indication: INDUCTION OF ANAESTHESIA
     Route: 042
     Dates: start: 20041012, end: 20041012
  3. ZANTAC [Concomitant]
     Indication: ANAESTHETIC PREMEDICATION
     Route: 048
     Dates: start: 20041011, end: 20041012
  4. ATARAX [Concomitant]
     Indication: ANTIALLERGIC THERAPY
     Route: 042
     Dates: start: 20041012, end: 20041012
  5. ATROPINE SULFATE [Concomitant]
     Route: 042
     Dates: start: 20041012, end: 20041012
  6. ANALGESIC [Concomitant]
     Indication: DYSMENORRHOEA

REACTIONS (4)
  - COUGH [None]
  - LYMPHOCYTE STIMULATION TEST POSITIVE [None]
  - STRIDOR [None]
  - WHEEZING [None]
